FAERS Safety Report 22351083 (Version 2)
Quarter: 2023Q2

REPORT INFORMATION
  Report Type: Spontaneous
  Country: DE (occurrence: DE)
  Receive Date: 20230522
  Receipt Date: 20230623
  Transmission Date: 20230722
  Serious: Yes (Life-Threatening, Other)
  Sender: FDA-Public Use
  Company Number: DE-002147023-NVSC2023DE107688

PATIENT
  Sex: Female

DRUGS (9)
  1. FILGRASTIM [Suspect]
     Active Substance: FILGRASTIM
     Indication: White blood cell count decreased
     Dosage: UNK
     Dates: start: 20210502
  2. FILGRASTIM [Suspect]
     Active Substance: FILGRASTIM
     Dosage: UNK (SYRINGE)
  3. CORTISONE [Suspect]
     Active Substance: CORTISONE
     Indication: Adjuvant therapy
     Dosage: UNK
     Route: 065
  4. CYCLOPHOSPHAMIDE [Suspect]
     Active Substance: CYCLOPHOSPHAMIDE
     Indication: Breast cancer female
     Dosage: UNK, Q2W (EVERY 2 WEEKS / 4 CYCLES) (INFUSION)
     Route: 065
     Dates: start: 20201215, end: 20210126
  5. DOCETAXEL [Suspect]
     Active Substance: DOCETAXEL
     Indication: Breast cancer female
     Dosage: UNK, QW (WEEKLY /8 CYCLES) (INFUSION)
     Route: 065
     Dates: start: 2021, end: 2021
  6. DEXAMETHASONE [Suspect]
     Active Substance: DEXAMETHASONE
     Indication: Prophylaxis of nausea and vomiting
     Dosage: 1 DOSAGE FORM, QD (DAILY IN THE 2 DAYS AFTER CHEMOTHERAPY)
     Route: 048
     Dates: start: 20201216
  7. PACLITAXEL [Suspect]
     Active Substance: PACLITAXEL
     Indication: Breast cancer female
     Dosage: UNK, QW (WEEKLY /8 CYCLES) (INFUSION)
     Route: 065
     Dates: start: 2021, end: 2021
  8. HERCEPTIN [Suspect]
     Active Substance: TRASTUZUMAB
     Indication: Breast cancer female
     Dosage: UNK, QW (WEEKLY /8 CYCLES) (INFUSION)
     Route: 065
     Dates: start: 2021, end: 2021
  9. DOXORUBICIN [Suspect]
     Active Substance: DOXORUBICIN
     Indication: Breast cancer female
     Dosage: UNK UNK, Q2W (EVERY 2 WEEKS / 4 CYCLES) (INFUSION)
     Route: 065
     Dates: start: 20201215, end: 20210126

REACTIONS (44)
  - Neuropathy peripheral [Recovering/Resolving]
  - White blood cell count decreased [Recovered/Resolved]
  - White blood cell count decreased [Not Recovered/Not Resolved]
  - Red blood cell count decreased [Unknown]
  - Bone pain [Unknown]
  - Haemoglobin decreased [Unknown]
  - Immune system disorder [Unknown]
  - Insomnia [Unknown]
  - Fatigue [Recovering/Resolving]
  - Lip pain [Unknown]
  - Alopecia [Unknown]
  - Food craving [Unknown]
  - Headache [Unknown]
  - Restlessness [Not Recovered/Not Resolved]
  - Aphasia [Unknown]
  - Tremor [Unknown]
  - Dizziness [Unknown]
  - Taste disorder [Not Recovered/Not Resolved]
  - Abdominal discomfort [Unknown]
  - Nasal congestion [Unknown]
  - Depression [Unknown]
  - Hot flush [Unknown]
  - Oral pain [Recovering/Resolving]
  - Dactylitis [Unknown]
  - Abdominal distension [Unknown]
  - Pain in extremity [Unknown]
  - Feeling abnormal [Recovering/Resolving]
  - Eye swelling [Unknown]
  - Dry skin [Unknown]
  - Muscle spasms [Unknown]
  - Memory impairment [Unknown]
  - Pain [Unknown]
  - Eye irritation [Unknown]
  - Nasopharyngitis [Not Recovered/Not Resolved]
  - Nausea [Unknown]
  - White blood cell count increased [Recovered/Resolved]
  - Platelet count decreased [Unknown]
  - Decreased appetite [Unknown]
  - Musculoskeletal chest pain [Unknown]
  - Epistaxis [Not Recovered/Not Resolved]
  - Dysphonia [Unknown]
  - Lacrimation increased [Unknown]
  - Dysgeusia [Unknown]
  - Haematocrit decreased [Unknown]

NARRATIVE: CASE EVENT DATE: 20201215
